FAERS Safety Report 4653200-X (Version None)
Quarter: 2005Q2

REPORT INFORMATION
  Report Type: 
  Country: None (occurrence: None)
  Receive Date: 20050503
  Receipt Date: 20040102
  Transmission Date: 20051028
  Serious: Yes (Hospitalization)
  Sender: FDA-Public Use
  Company Number: D01200400007

PATIENT
  Age: 54 Year
  Sex: Female

DRUGS (20)
  1. SR57746 OR PLACEBO - CAPSULE - 1 MG [Suspect]
     Indication: COLORECTAL CANCER METASTATIC
     Dosage: 1 MG QD ORAL
     Route: 048
     Dates: start: 20031104
  2. OXALIPLATIN - SOLUTION - 85 MG/M2 [Suspect]
     Dosage: 85 MG/M2 Q2W INTRAVENOUS NOS
     Route: 042
     Dates: start: 20031222, end: 20031222
  3. FLUOROURACIL [Suspect]
     Dosage: 400 MG/M2 AS IV BOLUS THEN 600 MG/M2 AS 22 HOURS CONTINUOUS INFUSION D1-D2 Q2W INTRAVENOUS NOS
     Route: 042
     Dates: start: 20031222, end: 20031223
  4. LEUCOVORIN CALCIUM [Suspect]
     Dosage: 200 MG/M2 MG/M2 AS 2 HOURS INFUSION ON D1-D2 Q2W INTRAVENOUS NOS
     Route: 042
     Dates: start: 20031222, end: 20031223
  5. ZOPHREN (ONDANSETRON HCL) [Concomitant]
  6. MEDROL [Concomitant]
  7. DURAGESIC (FENTANYL) [Concomitant]
  8. LEXOMIL (BROMAZEPAM) [Concomitant]
  9. MIRTAZAPINE [Concomitant]
  10. POTASSIUM CHLORIDE [Concomitant]
  11. FEROGRAD VIT250 (FERROUS SULFATE/VITAMIN C) [Concomitant]
  12. COVERSYL (PERINDOPRIL) [Concomitant]
  13. ATARAX [Concomitant]
  14. FERROUS FUMARATE [Concomitant]
  15. PRIMPERAN TAB [Concomitant]
  16. PLITICAN (ALIZAPRIDE HCL) [Concomitant]
  17. MORPHINE SULFATE [Concomitant]
  18. PREDNISOLONE [Concomitant]
  19. METOCLOPRAMIDE [Concomitant]
  20. ONDANSETRON [Concomitant]

REACTIONS (24)
  - ALANINE AMINOTRANSFERASE INCREASED [None]
  - ASPARTATE AMINOTRANSFERASE INCREASED [None]
  - BLOOD BILIRUBIN INCREASED [None]
  - BLOOD CREATININE ABNORMAL [None]
  - BLOOD POTASSIUM DECREASED [None]
  - BLOOD SODIUM DECREASED [None]
  - BLOOD UREA DECREASED [None]
  - COMPUTERISED TOMOGRAM ABNORMAL [None]
  - CONFUSIONAL STATE [None]
  - DISEASE PROGRESSION [None]
  - DISORIENTATION [None]
  - FATIGUE [None]
  - GENERAL PHYSICAL HEALTH DETERIORATION [None]
  - HAEMOGLOBIN DECREASED [None]
  - HYPOKALAEMIA [None]
  - LUNG NEOPLASM [None]
  - METASTASES TO LIVER [None]
  - NAUSEA [None]
  - NEUTROPHIL COUNT DECREASED [None]
  - PLATELET COUNT DECREASED [None]
  - PYREXIA [None]
  - SPEECH DISORDER [None]
  - VOMITING [None]
  - WHITE BLOOD CELL COUNT DECREASED [None]
